FAERS Safety Report 20821074 (Version 1)
Quarter: 2022Q2

REPORT INFORMATION
  Report Type: Spontaneous
  Country: US (occurrence: US)
  Receive Date: 20220512
  Receipt Date: 20220512
  Transmission Date: 20220721
  Serious: No
  Sender: FDA-Public Use
  Company Number: US-PFIZER INC-202200230382

PATIENT
  Age: 48 Year
  Sex: Female

DRUGS (2)
  1. XELJANZ XR [Suspect]
     Active Substance: TOFACITINIB CITRATE
     Indication: Arthralgia
     Dosage: 11 MG, DAILY
     Route: 048
     Dates: start: 20211204
  2. XELJANZ XR [Suspect]
     Active Substance: TOFACITINIB CITRATE
     Indication: Rheumatoid arthritis

REACTIONS (2)
  - Drug effective for unapproved indication [Unknown]
  - Sinusitis [Unknown]

NARRATIVE: CASE EVENT DATE: 20211201
